FAERS Safety Report 4370800-5 (Version None)
Quarter: 2004Q2

REPORT INFORMATION
  Report Type: 
  Country: None (occurrence: None)
  Receive Date: 20040601
  Receipt Date: 20040517
  Transmission Date: 20050107
  Serious: Yes (Hospitalization)
  Sender: FDA-Public Use
  Company Number: 2004CG00944

PATIENT
  Age: 46 Year
  Sex: Female

DRUGS (4)
  1. TENORMIN [Suspect]
     Dosage: 100 MG DAILY PO
     Route: 048
  2. CORTANCYL [Suspect]
     Dosage: 50 MG DAILY PO
     Route: 048
  3. GUTRON [Suspect]
     Dosage: 5 MG DAILY PO
     Route: 048
  4. MESTINON [Suspect]
     Dosage: 300 MG DAILY PO
     Route: 048

REACTIONS (1)
  - CHEST PAIN [None]
